FAERS Safety Report 7788908-0 (Version None)
Quarter: 2011Q3

REPORT INFORMATION
  Report Type: 
  Country: None (occurrence: None)
  Receive Date: 20110930
  Receipt Date: 20110927
  Transmission Date: 20111222
  Serious: Yes (Other)
  Sender: FDA-Public Use
  Company Number: KR-BRACCO-000017

PATIENT
  Age: 48 Year
  Sex: Male

DRUGS (2)
  1. IOPAMIDOL [Suspect]
     Indication: COMPUTERISED TOMOGRAM
     Dosage: AT A RATE OF 3 ML/S
     Route: 042
  2. IOPAMIDOL [Suspect]
     Indication: COMPUTERISED TOMOGRAM ABDOMEN
     Dosage: AT A RATE OF 3 ML/S
     Route: 042

REACTIONS (2)
  - SMALL BOWEL ANGIOEDEMA [None]
  - VOMITING [None]
